FAERS Safety Report 21349058 (Version 1)
Quarter: 2022Q3

REPORT INFORMATION
  Report Type: Spontaneous
  Country: GB (occurrence: GB)
  Receive Date: 20220919
  Receipt Date: 20220919
  Transmission Date: 20221026
  Serious: Yes (Other)
  Sender: FDA-Public Use
  Company Number: GB-MHRA-TPP25138906C9740485YC1662019599023

PATIENT
  Age: 60 Year
  Sex: Female
  Weight: 83 kg

DRUGS (11)
  1. LANSOPRAZOLE [Suspect]
     Active Substance: LANSOPRAZOLE
     Indication: Ill-defined disorder
     Dosage: UNK
     Route: 065
     Dates: start: 20220901
  2. ACYCLOVIR [Concomitant]
     Active Substance: ACYCLOVIR
     Indication: Ill-defined disorder
     Dosage: TAKE ONE 5 TIMES A DAY FOR VIRAL INFECTION.
     Route: 065
     Dates: start: 20220225
  3. ASPIRIN [Concomitant]
     Active Substance: ASPIRIN
     Indication: Ill-defined disorder
     Dosage: TAKE ONE DAILY
     Route: 065
     Dates: start: 20220525
  4. ATORVASTATIN [Concomitant]
     Active Substance: ATORVASTATIN
     Indication: Ill-defined disorder
     Dosage: TAKE ONE IN THE EVENING TO LOWER CHOLESTEROL LE...
     Route: 065
     Dates: start: 20220412
  5. BISOPROLOL [Concomitant]
     Active Substance: BISOPROLOL
     Indication: Ill-defined disorder
     Dosage: ONE TO BE TAKEN DAILY
     Route: 065
     Dates: start: 20220412
  6. CLOPIDOGREL [Concomitant]
     Active Substance: CLOPIDOGREL BISULFATE
     Indication: Ill-defined disorder
     Dosage: ONE TABLET TO BE TAKEN ONCE DAILY TO HELP PREVE...
     Route: 065
     Dates: start: 20220831
  7. NITROGLYCERIN [Concomitant]
     Active Substance: NITROGLYCERIN
     Indication: Ill-defined disorder
     Dosage: USE ONE TO TWO SPRAYS UNDER THE TONGUE WHEN REQ...
     Route: 065
     Dates: start: 20220818
  8. ISOSORBIDE MONONITRATE [Concomitant]
     Active Substance: ISOSORBIDE MONONITRATE
     Indication: Ill-defined disorder
     Dosage: TAKE ONE (20MG) TABLET TWICE DAILY AFTER BREAKF...
     Route: 065
     Dates: start: 20220412
  9. LEVOTHYROXINE [Concomitant]
     Active Substance: LEVOTHYROXINE
     Indication: Ill-defined disorder
     Dosage: ONE TO BE TAKEN EACH MORNING TO TREAT UNDERACTI...
     Route: 065
     Dates: start: 20211206
  10. OMEPRAZOLE [Concomitant]
     Active Substance: OMEPRAZOLE
     Indication: Ill-defined disorder
     Dosage: ONE CAPSULE TO BE TAKEN ONCE A DAY
     Route: 065
     Dates: start: 20220901
  11. SOLPADOL [Concomitant]
     Indication: Ill-defined disorder
     Dosage: 2 TABLETS BD
     Route: 065
     Dates: start: 20220525

REACTIONS (1)
  - Adverse drug reaction [Recovering/Resolving]

NARRATIVE: CASE EVENT DATE: 20220901
